FAERS Safety Report 10213697 (Version 1)
Quarter: 2014Q2

REPORT INFORMATION
  Report Type: Spontaneous
  Country: US (occurrence: None)
  Receive Date: 20140602
  Receipt Date: 20140602
  Transmission Date: 20141212
  Serious: No
  Sender: FDA-Public Use
  Company Number: None

PATIENT
  Age: 50 Year
  Sex: Female
  Weight: 95.71 kg

DRUGS (1)
  1. LEVOFLOXACIN [Suspect]
     Indication: SINUSITIS
     Dosage: 1 PILL ONCE DAILY
     Route: 048
     Dates: start: 20140514, end: 20140523

REACTIONS (17)
  - Dizziness [None]
  - Syncope [None]
  - Muscular weakness [None]
  - Panic attack [None]
  - Dyspnoea [None]
  - Diarrhoea [None]
  - Arthralgia [None]
  - Headache [None]
  - Stress [None]
  - Hypoaesthesia [None]
  - Joint swelling [None]
  - Peripheral swelling [None]
  - Peripheral swelling [None]
  - Gait disturbance [None]
  - Joint crepitation [None]
  - Arthralgia [None]
  - Gait disturbance [None]
